FAERS Safety Report 12179555 (Version 2)
Quarter: 2016Q2

REPORT INFORMATION
  Report Type: Spontaneous
  Country: IT (occurrence: IT)
  Receive Date: 20160315
  Receipt Date: 20160629
  Transmission Date: 20160815
  Serious: Yes (Other)
  Sender: FDA-Public Use
  Company Number: IT-UCBSA-2016008070

PATIENT
  Age: 49 Year
  Sex: Female

DRUGS (5)
  1. BRUFEN [Concomitant]
     Active Substance: IBUPROFEN
     Indication: PAIN
  2. CIMZIA [Suspect]
     Active Substance: CERTOLIZUMAB PEGOL
     Indication: PSORIATIC ARTHROPATHY
     Dosage: UNKNOWN DOSE, RECEIVED TOTALLY 6 VIALS, (EXP DATE: AUG-2016)
     Dates: start: 20151209, end: 20160224
  3. ALPRAZOLAM. [Concomitant]
     Active Substance: ALPRAZOLAM
     Indication: PANIC ATTACK
     Dosage: UNK
  4. DICLOFENAC SODIUM. [Concomitant]
     Active Substance: DICLOFENAC SODIUM
     Indication: ARTHRALGIA
     Dosage: 75 MG/ML  AT A MAX DOSE OF ONE VIAL WEEKLY
     Route: 058
  5. BRUFEN [Concomitant]
     Active Substance: IBUPROFEN
     Indication: ARTHRALGIA
     Dosage: 600 MG, UNK
     Route: 030

REACTIONS (2)
  - Urticaria [Recovering/Resolving]
  - Pruritus generalised [Recovering/Resolving]

NARRATIVE: CASE EVENT DATE: 20160119
